FAERS Safety Report 22155558 (Version 1)
Quarter: 2023Q1

REPORT INFORMATION
  Report Type: Spontaneous
  Country: FR (occurrence: FR)
  Receive Date: 20230330
  Receipt Date: 20230330
  Transmission Date: 20230418
  Serious: Yes (Other)
  Sender: FDA-Public Use
  Company Number: FR-GILEAD-2023-0620850

PATIENT
  Sex: Male
  Weight: 74 kg

DRUGS (2)
  1. TENOFOVIR DISOPROXIL FUMARATE [Suspect]
     Active Substance: TENOFOVIR DISOPROXIL FUMARATE
     Indication: HIV infection
     Route: 065
  2. EMTRICITABINE\TENOFOVIR [Suspect]
     Active Substance: EMTRICITABINE\TENOFOVIR
     Indication: HIV infection
     Route: 065

REACTIONS (3)
  - Diabetes mellitus [Unknown]
  - Renal tubular disorder [Unknown]
  - Genotype drug resistance test positive [Not Recovered/Not Resolved]

NARRATIVE: CASE EVENT DATE: 20110101
